FAERS Safety Report 13510183 (Version 2)
Quarter: 2019Q2

REPORT INFORMATION
  Report Type: Spontaneous
  Country: US (occurrence: US)
  Receive Date: 20170503
  Receipt Date: 20190522
  Transmission Date: 20190711
  Serious: Yes (Other)
  Sender: FDA-Public Use
  Company Number: US-PFIZER INC-2017194675

PATIENT
  Age: 55 Year
  Sex: Male

DRUGS (12)
  1. METRONIDAZOLE. [Concomitant]
     Active Substance: METRONIDAZOLE
     Dosage: UNK, 2X/DAY
     Route: 061
  2. NEOMYCIN-POLYMYXIN-HC [Concomitant]
     Dosage: 1-3.5-10,000 %-MG-UNIT/ML OTIC SUSP. DROPS, 2 TO 3 DROPS, 4 TIMES A DAY
  3. VIAGRA [Suspect]
     Active Substance: SILDENAFIL CITRATE
     Dosage: 100 MG, ONCE A MONTH
     Dates: start: 20061108, end: 20130501
  4. OMEPRAZOLE. [Concomitant]
     Active Substance: OMEPRAZOLE
     Dosage: 1 DF, DAILY (1 HOUR PRIOR TO A MEAL)
     Route: 048
  5. FLEXERIL [Concomitant]
     Active Substance: CYCLOBENZAPRINE HYDROCHLORIDE
     Indication: MUSCLE SPASMS
     Dosage: 1 DF, 3X/DAY (WHEN NEEDED)
     Route: 048
  6. BACITRACIN-POLYMYXIN B [Concomitant]
     Active Substance: BACITRACIN ZINC\POLYMYXIN B SULFATE
     Dosage: 500-10,000 UNIT/G
     Route: 047
  7. VIAGRA [Suspect]
     Active Substance: SILDENAFIL CITRATE
     Indication: ERECTILE DYSFUNCTION
     Dosage: UNK
     Route: 048
     Dates: start: 200611, end: 201507
  8. VIAGRA [Suspect]
     Active Substance: SILDENAFIL CITRATE
     Dosage: 100 MG, 1/2 TABLET ORALLY 1/2 HOUR BEFORE SEXUAL ACTIVITY
     Route: 048
  9. SIMVASTATIN. [Concomitant]
     Active Substance: SIMVASTATIN
     Dosage: 1 DF (TABLET), 1X/DAY (EVERY EVENING)
     Route: 048
  10. VIAGRA [Suspect]
     Active Substance: SILDENAFIL CITRATE
     Dosage: 20 MG, ONCE A MONTH
     Dates: start: 20130808, end: 20161215
  11. FLUOROPLEX [Concomitant]
     Active Substance: FLUOROURACIL
     Dosage: UNK, 2X/DAY, FOR 2 WEEKS
     Route: 061
  12. REVATIO [Concomitant]
     Active Substance: SILDENAFIL CITRATE
     Dosage: 3 DF, 1 HOUR PRIOR TO SEXUAL ACTIVITY
     Route: 048

REACTIONS (1)
  - Malignant melanoma [Unknown]

NARRATIVE: CASE EVENT DATE: 20080819
